FAERS Safety Report 4498979-5 (Version None)
Quarter: 2004Q4

REPORT INFORMATION
  Report Type: 
  Country: None (occurrence: None)
  Receive Date: 20041110
  Receipt Date: 20041110
  Transmission Date: 20050328
  Serious: Yes (Hospitalization)
  Sender: FDA-Public Use
  Company Number: None

PATIENT
  Sex: Male
  Weight: 74.3899 kg

DRUGS (5)
  1. BEXTRA [Suspect]
     Indication: SPINAL OSTEOARTHRITIS
     Dosage: 20 MG PO DAILY
     Route: 048
     Dates: start: 20041020, end: 20041025
  2. METHADONE [Concomitant]
  3. PERCOCET [Concomitant]
  4. SKALAZIN [Concomitant]
  5. MIRALAX [Concomitant]

REACTIONS (1)
  - ACUTE MYOCARDIAL INFARCTION [None]
